FAERS Safety Report 5999709-8 (Version None)
Quarter: 2008Q4

REPORT INFORMATION
  Report Type: 
  Country: None (occurrence: None)
  Receive Date: 20081211
  Receipt Date: 20081211
  Transmission Date: 20090506
  Serious: Yes (Other)
  Sender: FDA-Public Use
  Company Number: None

PATIENT
  Age: 52 Year
  Sex: Female
  Weight: 86.1834 kg

DRUGS (1)
  1. SCOPOLAMINE [Suspect]
     Indication: PROPHYLAXIS AGAINST MOTION SICKNESS
     Dosage: 1 PATCH Q 72 HOURS TRANSDERMAL
     Route: 062
     Dates: start: 20080615, end: 20080711

REACTIONS (6)
  - DRUG DEPENDENCE [None]
  - DRUG TOLERANCE [None]
  - INAPPROPRIATE SCHEDULE OF DRUG ADMINISTRATION [None]
  - NAUSEA [None]
  - NO REACTION ON PREVIOUS EXPOSURE TO DRUG [None]
  - VOMITING [None]
